FAERS Safety Report 25203369 (Version 1)
Quarter: 2025Q2

REPORT INFORMATION
  Report Type: Spontaneous
  Country: US (occurrence: US)
  Receive Date: 20250416
  Receipt Date: 20250416
  Transmission Date: 20250716
  Serious: No
  Sender: ELI LILLY AND CO
  Company Number: US-ELI_LILLY_AND_COMPANY-US202504013233

PATIENT
  Age: 35 Year
  Sex: Female

DRUGS (9)
  1. ZEPBOUND [Suspect]
     Active Substance: TIRZEPATIDE
     Indication: Weight control
     Route: 058
     Dates: start: 20250407
  2. ZEPBOUND [Suspect]
     Active Substance: TIRZEPATIDE
     Indication: Weight control
     Route: 058
     Dates: start: 20250407
  3. ZEPBOUND [Suspect]
     Active Substance: TIRZEPATIDE
     Indication: Weight control
     Route: 058
     Dates: start: 20250407
  4. ZEPBOUND [Suspect]
     Active Substance: TIRZEPATIDE
     Indication: Weight control
     Route: 058
     Dates: start: 20250407
  5. ZEPBOUND [Suspect]
     Active Substance: TIRZEPATIDE
     Indication: Chronic obstructive pulmonary disease
  6. ZEPBOUND [Suspect]
     Active Substance: TIRZEPATIDE
     Indication: Chronic obstructive pulmonary disease
  7. ZEPBOUND [Suspect]
     Active Substance: TIRZEPATIDE
     Indication: Chronic obstructive pulmonary disease
  8. ZEPBOUND [Suspect]
     Active Substance: TIRZEPATIDE
     Indication: Chronic obstructive pulmonary disease
  9. ELIQUIS [Concomitant]
     Active Substance: APIXABAN
     Indication: Anticoagulant therapy

REACTIONS (1)
  - Cough [Not Recovered/Not Resolved]
